FAERS Safety Report 11975733 (Version 1)
Quarter: 2016Q1

REPORT INFORMATION
  Report Type: Spontaneous
  Country: US (occurrence: US)
  Receive Date: 20160129
  Receipt Date: 20160129
  Transmission Date: 20160526
  Serious: No
  Sender: FDA-Public Use
  Company Number: US-HOSPIRA-2874046

PATIENT
  Sex: Female

DRUGS (2)
  1. BUPIVACAINE HYDROCHLORIDE. [Suspect]
     Active Substance: BUPIVACAINE HYDROCHLORIDE
     Indication: CAESAREAN SECTION
     Dosage: 1.4 - 1.8 ML X 1
     Route: 037
  2. MORPHINE [Concomitant]
     Active Substance: MORPHINE
     Indication: CAESAREAN SECTION
     Dosage: X 1
     Route: 039

REACTIONS (1)
  - Drug ineffective [Recovered/Resolved]
